FAERS Safety Report 11659505 (Version 1)
Quarter: 2015Q4

REPORT INFORMATION
  Report Type: Report from Study
  Country: BE (occurrence: BE)
  Receive Date: 20151026
  Receipt Date: 20151026
  Transmission Date: 20160304
  Serious: Yes (Hospitalization)
  Sender: FDA-Public Use
  Company Number: BE-BIOGENIDEC-2015BI141697

PATIENT
  Age: 16 Year
  Sex: Male

DRUGS (1)
  1. PLEGRIDY [Suspect]
     Active Substance: PEGINTERFERON BETA-1A
     Indication: MULTIPLE SCLEROSIS
     Dates: start: 20151009

REACTIONS (3)
  - Drug administered to patient of inappropriate age [Unknown]
  - Multiple sclerosis relapse [Unknown]
  - Headache [Unknown]

NARRATIVE: CASE EVENT DATE: 20151009
